FAERS Safety Report 17760571 (Version 2)
Quarter: 2021Q1

REPORT INFORMATION
  Report Type: Spontaneous
  Country: AR (occurrence: AR)
  Receive Date: 20200508
  Receipt Date: 20210219
  Transmission Date: 20210419
  Serious: Yes (Other)
  Sender: FDA-Public Use
  Company Number: AR-PFIZER INC-2020184172

PATIENT
  Age: 71 Year
  Sex: Female

DRUGS (1)
  1. XELJANZ XR [Suspect]
     Active Substance: TOFACITINIB CITRATE
     Indication: RHEUMATOID ARTHRITIS
     Dosage: 11 MG, 1X/DAY
     Dates: start: 20190417

REACTIONS (4)
  - Feeling abnormal [Unknown]
  - Oral infection [Unknown]
  - Ear infection [Unknown]
  - Deafness [Unknown]

NARRATIVE: CASE EVENT DATE: 202001
